FAERS Safety Report 19844196 (Version 2)
Quarter: 2021Q3

REPORT INFORMATION
  Report Type: Spontaneous
  Country: FR (occurrence: FR)
  Receive Date: 20210916
  Receipt Date: 20210920
  Transmission Date: 20211014
  Serious: Yes (Other)
  Sender: FDA-Public Use
  Company Number: FR-MYLANLABS-2021M1062259

PATIENT
  Age: 31 Year
  Sex: Male
  Weight: 81 kg

DRUGS (4)
  1. IMOVANE [Concomitant]
     Active Substance: ZOPICLONE
     Dosage: LONG COURS
     Route: 048
  2. VANCOMYCIN [Suspect]
     Active Substance: VANCOMYCIN
     Indication: OSTEOMYELITIS
     Dosage: 1 GRAM, BID
     Route: 042
     Dates: start: 20210129, end: 20210204
  3. TIENAM [Concomitant]
     Active Substance: CILASTATIN SODIUM\IMIPENEM
     Dosage: 1 GRAM, Q8H
     Route: 042
     Dates: start: 20210107
  4. DAPTOMYCINE [Suspect]
     Active Substance: DAPTOMYCIN
     Indication: OSTEOMYELITIS
     Dosage: 700 MILLIGRAM, QD (Q24H)
     Route: 042
     Dates: start: 20210107, end: 20210129

REACTIONS (1)
  - Rhabdomyolysis [Recovered/Resolved]

NARRATIVE: CASE EVENT DATE: 20210129
